FAERS Safety Report 4719534-5 (Version None)
Quarter: 2005Q3

REPORT INFORMATION
  Report Type: 
  Country: None (occurrence: None)
  Receive Date: 20050719
  Receipt Date: 20050719
  Transmission Date: 20060218
  Serious: Yes (Hospitalization)
  Sender: FDA-Public Use
  Company Number: None

PATIENT
  Sex: Male

DRUGS (5)
  1. IBUPROFEN [Suspect]
     Indication: TOOTH DISORDER
     Dosage: 600 MG TID ORAL
     Route: 048
     Dates: start: 20050316, end: 20050319
  2. AMOXICILLIN [Concomitant]
  3. CALCIUM ACETATE [Concomitant]
  4. INSULIN [Concomitant]
  5. SOLDIUM BICARBONATE [Concomitant]

REACTIONS (1)
  - URINE OUTPUT DECREASED [None]
